FAERS Safety Report 22058295 (Version 1)
Quarter: 2023Q1

REPORT INFORMATION
  Report Type: Spontaneous
  Country: IT (occurrence: None)
  Receive Date: 20230303
  Receipt Date: 20230303
  Transmission Date: 20230417
  Serious: Yes (Congenital Anomaly, Other)
  Sender: FDA-Public Use
  Company Number: IT-MICRO LABS LIMITED-ML2023-01107

PATIENT
  Sex: Female
  Weight: 2.2 kg

DRUGS (1)
  1. OLMESARTAN MEDOXOMIL [Suspect]
     Active Substance: OLMESARTAN MEDOXOMIL
     Indication: Essential hypertension
     Route: 064

REACTIONS (7)
  - Hypertension [Unknown]
  - Renin increased [Unknown]
  - Blood aldosterone increased [Unknown]
  - Bone demineralisation [Unknown]
  - Renal tubular dysfunction [Unknown]
  - Hypocalvaria [Unknown]
  - Foetal exposure during pregnancy [Unknown]
